FAERS Safety Report 9166781 (Version 1)
Quarter: 2012Q4

REPORT INFORMATION
  Report Type: 
  Country: US (occurrence: US)
  Receive Date: 20121120
  Receipt Date: 20121120
  Transmission Date: 20130627
  Serious: Yes (Death, Life-Threatening)
  Sender: FDA-Public Use
  Company Number: US-BRACCO-008843

PATIENT
  Age: 79 None
  Sex: Female
  Weight: 74 kg

DRUGS (12)
  1. ISOVUE 370 [Suspect]
     Indication: DYSPNOEA
     Route: 042
     Dates: start: 20121114, end: 20121114
  2. ISOVUE 370 [Suspect]
     Indication: ANGIOGRAM
     Route: 042
     Dates: start: 20121114, end: 20121114
  3. ISOVUE 370 [Suspect]
     Indication: PULMONARY EMBOLISM
     Route: 042
     Dates: start: 20121114, end: 20121114
  4. ZOFRAN [Concomitant]
     Dosage: given at 16:04 pre scan
     Dates: start: 20121114, end: 20121114
  5. MULTIVITAMINS [Concomitant]
  6. VITAMIN B6 [Concomitant]
  7. ESTRADIOL [Concomitant]
  8. LEVOTHYROXINE [Concomitant]
  9. MAGNESIUM [Concomitant]
  10. TUMS [Concomitant]
  11. VITAMIN C [Concomitant]
  12. IBUPROFEN [Concomitant]

REACTIONS (2)
  - Cardiac arrest [Fatal]
  - Respiratory arrest [Fatal]
